FAERS Safety Report 4996848-5 (Version None)
Quarter: 2006Q2

REPORT INFORMATION
  Report Type: 
  Country: None (occurrence: None)
  Receive Date: 20060509
  Receipt Date: 20060224
  Transmission Date: 20061013
  Serious: Yes (Death, Hospitalization, Other)
  Sender: FDA-Public Use
  Company Number: US-MERCK-0602USA05698

PATIENT
  Age: 46 Year
  Sex: Female
  Weight: 114 kg

DRUGS (2)
  1. VIOXX [Suspect]
     Indication: ARTHRITIS
     Route: 048
     Dates: start: 20020801, end: 20040901
  2. ASPIRIN [Concomitant]
     Route: 065

REACTIONS (28)
  - ANAEMIA [None]
  - APALLIC SYNDROME [None]
  - BLOOD UREA INCREASED [None]
  - CARDIAC FAILURE CONGESTIVE [None]
  - CAROTID ARTERY OCCLUSION [None]
  - CEREBRAL ARTERY OCCLUSION [None]
  - CEREBRAL INFARCTION [None]
  - CEREBRAL ISCHAEMIA [None]
  - CEREBROVASCULAR ACCIDENT [None]
  - CEREBROVASCULAR DISORDER [None]
  - CORONARY ARTERY DISEASE [None]
  - DECUBITUS ULCER [None]
  - DEMYELINATION [None]
  - DIABETES MELLITUS [None]
  - DYSARTHRIA [None]
  - ELECTROCARDIOGRAM ST-T CHANGE [None]
  - HAEMOPTYSIS [None]
  - HYPERNATRAEMIA [None]
  - INFECTION [None]
  - LACUNAR INFARCTION [None]
  - MULTIPLE SCLEROSIS [None]
  - OSTEOMYELITIS [None]
  - PERIPHERAL VASCULAR DISORDER [None]
  - PYREXIA [None]
  - RESPIRATORY DISTRESS [None]
  - SINUS TACHYCARDIA [None]
  - TACHYCARDIA [None]
  - URINARY TRACT INFECTION [None]
